FAERS Safety Report 21636244 (Version 4)
Quarter: 2022Q4

REPORT INFORMATION
  Report Type: Report from Study
  Country: US (occurrence: US)
  Receive Date: 20221124
  Receipt Date: 20221226
  Transmission Date: 20230113
  Serious: Yes (Hospitalization, Other)
  Sender: FDA-Public Use
  Company Number: US-UCBSA-2022018078

PATIENT
  Age: 72 Year
  Sex: Female
  Weight: 57.87 kg

DRUGS (3)
  1. LACOSAMIDE [Suspect]
     Active Substance: LACOSAMIDE
     Indication: Seizure
     Dosage: 200MG AM AND 250MG PM
  2. LACOSAMIDE [Suspect]
     Active Substance: LACOSAMIDE
     Dosage: 400MG TWICE DAILY AND ALSO TAKES 50MG
  3. LACOSAMIDE [Suspect]
     Active Substance: LACOSAMIDE
     Dosage: 200 MILLIGRAM, 2X/DAY (BID)
     Dates: start: 2022

REACTIONS (17)
  - Sinusitis [Recovered/Resolved]
  - Multiple fractures [Unknown]
  - Fall [Not Recovered/Not Resolved]
  - Blindness transient [Unknown]
  - COVID-19 [Recovered/Resolved]
  - Physiotherapy [Not Recovered/Not Resolved]
  - Concussion [Recovering/Resolving]
  - Overdose [Unknown]
  - Product use issue [Unknown]
  - Extra dose administered [Unknown]
  - Balance disorder [Unknown]
  - Headache [Unknown]
  - Somnolence [Unknown]
  - Photosensitivity reaction [Unknown]
  - Abdominal discomfort [Unknown]
  - Vertigo [Unknown]
  - Vision blurred [Unknown]

NARRATIVE: CASE EVENT DATE: 20220515
